FAERS Safety Report 8445672-X (Version None)
Quarter: 2012Q2

REPORT INFORMATION
  Report Type: 
  Country: None (occurrence: None)
  Receive Date: 20120323
  Receipt Date: 20110805
  Transmission Date: 20120825
  Serious: Yes (Hospitalization)
  Sender: FDA-Public Use
  Company Number: 163-21880-11063085

PATIENT
  Age: 78 Year
  Sex: Male

DRUGS (6)
  1. REVLIMID [Suspect]
     Indication: MULTIPLE MYELOMA
     Dosage: 10 MG, DAILY X 21 DAYS/7 DAYS OFF, PO, 5 MG, 3 WEEKS ON 1 WEEK OFF, PO
     Route: 048
     Dates: start: 20110520, end: 20110601
  2. PREDNISONE TAB [Concomitant]
  3. DEXAMETHASONE [Concomitant]
  4. PERCOCET (OXYCET) [Concomitant]
  5. METHOTREXATE [Concomitant]
  6. OXYCONTIN [Concomitant]

REACTIONS (3)
  - OEDEMA PERIPHERAL [None]
  - RASH GENERALISED [None]
  - RASH ERYTHEMATOUS [None]
